FAERS Safety Report 23098516 (Version 1)
Quarter: 2023Q4

REPORT INFORMATION
  Report Type: Report from Study
  Country: JP (occurrence: JP)
  Receive Date: 20231023
  Receipt Date: 20231023
  Transmission Date: 20240110
  Serious: Yes (Hospitalization, Other)
  Sender: FDA-Public Use
  Company Number: JP-RPC01-3103-1131002-20211011-0001SG

PATIENT
  Age: 45 Year
  Sex: Female
  Weight: 52 kg

DRUGS (15)
  1. OZANIMOD [Suspect]
     Active Substance: OZANIMOD
     Indication: Colitis
     Dosage: 1 CAPSULE
     Route: 048
     Dates: start: 20200703, end: 20200706
  2. OZANIMOD [Suspect]
     Active Substance: OZANIMOD
     Dosage: 2 CAPSULE
     Route: 048
     Dates: start: 20200707, end: 20200709
  3. OZANIMOD [Suspect]
     Active Substance: OZANIMOD
     Dosage: 1 CAPSULE
     Route: 048
     Dates: start: 20200710, end: 20201001
  4. OZANIMOD [Suspect]
     Active Substance: OZANIMOD
     Dosage: 1 CAPSULE
     Route: 048
     Dates: start: 20201002, end: 20201005
  5. OZANIMOD [Suspect]
     Active Substance: OZANIMOD
     Dosage: 2 CAPSULE
     Route: 048
     Dates: start: 20201006, end: 20201008
  6. OZANIMOD [Suspect]
     Active Substance: OZANIMOD
     Dosage: 1 CAPSULE?WITHDRAWN ON 12-OCT-2021
     Route: 048
     Dates: start: 20201009, end: 20211011
  7. EVE [Concomitant]
     Indication: Headache
     Dosage: 2 TABLET X PRN
     Route: 048
     Dates: start: 1990
  8. TERRA-CORTRIL [HYDROCORTISONE;OXYTETRACYCLINE HYDROCHLORIDE] [Concomitant]
     Indication: Pruritus genital
     Dosage: FREQUENCY TEXT: AD LIBITUM?PROPER DOSE FINGERTIP UNIT X AD LIBITUM
     Route: 061
     Dates: start: 201912
  9. FLUMAZENIL [Concomitant]
     Active Substance: FLUMAZENIL
     Indication: Product used for unknown indication
     Dosage: FREQUENCY TEXT: ONCE?0.5 MG X ONCE
     Route: 042
     Dates: start: 20210928, end: 20210928
  10. LIDOCAINE [Concomitant]
     Active Substance: LIDOCAINE
     Indication: Product used for unknown indication
     Dosage: FREQUENCY TEXT: ONCE?15 ML X ONCE
     Route: 061
     Dates: start: 20210928, end: 20210928
  11. MIDAZOLAM [Concomitant]
     Active Substance: MIDAZOLAM
     Indication: Product used for unknown indication
     Dosage: FREQUENCY TEXT: ONCE?1.5 ML X ONCE
     Route: 042
     Dates: start: 20210928, end: 20210928
  12. ASCORBIC ACID\POLYETHYLENE GLYCOL 4000\POTASSIUM CL\SOD ASCORBATE\SOD [Concomitant]
     Active Substance: ASCORBIC ACID\POLYETHYLENE GLYCOL 4000\POTASSIUM CL\SOD ASCORBATE\SOD CL\SOD SULFATE
     Indication: Product used for unknown indication
     Dosage: FREQUENCY TEXT: ONCE?1 BAG X ONCE
     Route: 048
     Dates: start: 20210928, end: 20210928
  13. CALCIUM CHLORIDE\MALTOSE\POTASSIUM CHLORIDE\SODIUM CHLORIDE\SODIUM LAC [Concomitant]
     Active Substance: CALCIUM CHLORIDE\MALTOSE\POTASSIUM CHLORIDE\SODIUM CHLORIDE\SODIUM LACTATE
     Indication: Product used for unknown indication
     Dosage: FREQUENCY TEXT: ONCE?500 ML X ONCE
     Route: 042
     Dates: start: 20210928, end: 20210928
  14. SODIUM CHLORIDE [Concomitant]
     Active Substance: SODIUM CHLORIDE
     Indication: Product used for unknown indication
     Dosage: FREQUENCY TEXT: ONCE?20 ML X ONCE
     Route: 042
     Dates: start: 20210928, end: 20210928
  15. SODIUM PICOSULFATE [Concomitant]
     Active Substance: SODIUM PICOSULFATE
     Indication: Product used for unknown indication
     Dosage: FREQUENCY TEXT: ONCE?10 ML X ONCE
     Route: 048
     Dates: start: 20210927, end: 20210927

REACTIONS (1)
  - Lymphoproliferative disorder [Recovering/Resolving]

NARRATIVE: CASE EVENT DATE: 20210928
